FAERS Safety Report 16030171 (Version 1)
Quarter: 2019Q2

REPORT INFORMATION
  Report Type: Spontaneous
  Country: US (occurrence: US)
  Receive Date: 20190304
  Receipt Date: 20190304
  Transmission Date: 20190711
  Serious: Yes (Other)
  Sender: FDA-Public Use
  Company Number: None

PATIENT
  Age: 31 Year
  Sex: Female
  Weight: 67.5 kg

DRUGS (2)
  1. LITHIUM. [Suspect]
     Active Substance: LITHIUM
     Indication: SCHIZOAFFECTIVE DISORDER
     Dosage: ?          QUANTITY:2 TABLET(S);?
     Route: 048
     Dates: start: 20190218, end: 20190222
  2. OLANZAPINE. [Suspect]
     Active Substance: OLANZAPINE
     Indication: SCHIZOAFFECTIVE DISORDER
     Dosage: ?          QUANTITY:2 TABLET(S);?
     Route: 048
     Dates: start: 20190218, end: 20190222

REACTIONS (14)
  - Hypoaesthesia [None]
  - Venipuncture [None]
  - Chest pain [None]
  - Somnolence [None]
  - Vision blurred [None]
  - Dyspnoea [None]
  - Paraesthesia [None]
  - Vascular procedure complication [None]
  - Dizziness [None]
  - Constipation [None]
  - Heart rate irregular [None]
  - Infection [None]
  - Tinnitus [None]
  - Vein rupture [None]

NARRATIVE: CASE EVENT DATE: 20190223
